FAERS Safety Report 7443809-2 (Version None)
Quarter: 2011Q2

REPORT INFORMATION
  Report Type: 
  Country: None (occurrence: None)
  Receive Date: 20110428
  Receipt Date: 20110418
  Transmission Date: 20111010
  Serious: Yes (Hospitalization)
  Sender: FDA-Public Use
  Company Number: US-BAXTER-2011BH010141

PATIENT
  Sex: Female

DRUGS (1)
  1. DIANEAL [Suspect]
     Indication: PERITONEAL DIALYSIS
     Route: 033

REACTIONS (8)
  - NAUSEA [None]
  - BLOOD GLUCOSE DECREASED [None]
  - SYNCOPE [None]
  - VOMITING [None]
  - CARDIAC DISORDER [None]
  - HYPOKALAEMIA [None]
  - DIZZINESS [None]
  - HYPOTENSION [None]
